FAERS Safety Report 5638741-0 (Version None)
Quarter: 2008Q1

REPORT INFORMATION
  Report Type: 
  Country: None (occurrence: None)
  Receive Date: 20080221
  Receipt Date: 20080221
  Transmission Date: 20080703
  Serious: Yes (Other)
  Sender: FDA-Public Use
  Company Number: None

PATIENT
  Sex: Male

DRUGS (2)
  1. OXYCONTIN [Suspect]
     Indication: BACK PAIN
     Dosage: 40 MG ONE QID PO
     Route: 048
     Dates: start: 20080110
  2. OXYCONTIN [Suspect]
     Indication: PARAPLEGIA
     Dosage: 20 MG ONE BID PO
     Route: 048
     Dates: start: 20070110

REACTIONS (2)
  - CHEST DISCOMFORT [None]
  - NAUSEA [None]
